FAERS Safety Report 22371221 (Version 1)
Quarter: 2023Q2

REPORT INFORMATION
  Report Type: Report from Study
  Country: US (occurrence: US)
  Receive Date: 20230526
  Receipt Date: 20230526
  Transmission Date: 20230722
  Serious: Yes (Hospitalization)
  Sender: FDA-Public Use
  Company Number: US-NOVITIUMPHARMA-2023USNVP00797

PATIENT
  Age: 8 Month
  Sex: Female
  Weight: 19.5 kg

DRUGS (1)
  1. CARGLUMIC ACID [Suspect]
     Active Substance: CARGLUMIC ACID
     Indication: Isovaleric acidaemia
     Route: 048
     Dates: start: 20230418

REACTIONS (1)
  - Tremor [Recovered/Resolved]
